FAERS Safety Report 20553169 (Version 3)
Quarter: 2022Q2

REPORT INFORMATION
  Report Type: Report from Study
  Country: US (occurrence: US)
  Receive Date: 20220304
  Receipt Date: 20220425
  Transmission Date: 20220721
  Serious: Yes (Hospitalization)
  Sender: FDA-Public Use
  Company Number: US-NOVARTISPH-NVSC2022US048592

PATIENT
  Age: 61 Year
  Sex: Male

DRUGS (2)
  1. ENTRESTO [Suspect]
     Active Substance: SACUBITRIL\VALSARTAN
     Indication: Product used for unknown indication
     Dosage: 50 MG (24.3 MG SACUBITRIL AND 25.7 MG VALSARTAN), BID
     Route: 065
     Dates: start: 20220216, end: 20220225
  2. ENTRESTO [Suspect]
     Active Substance: SACUBITRIL\VALSARTAN
     Dosage: UNK
     Route: 065
     Dates: start: 20220310

REACTIONS (11)
  - Heart rate irregular [Recovering/Resolving]
  - Movement disorder [Unknown]
  - Heart rate increased [Not Recovered/Not Resolved]
  - Blood pressure decreased [Unknown]
  - Haemoglobin decreased [Unknown]
  - Dehydration [Recovering/Resolving]
  - Pollakiuria [Unknown]
  - Fluid retention [Unknown]
  - Asthenia [Recovering/Resolving]
  - Blood pressure systolic increased [Unknown]
  - Atrial flutter [Unknown]

NARRATIVE: CASE EVENT DATE: 20220225
